FAERS Safety Report 24055827 (Version 7)
Quarter: 2024Q4

REPORT INFORMATION
  Report Type: Spontaneous
  Country: BE (occurrence: BE)
  Receive Date: 20240705
  Receipt Date: 20241209
  Transmission Date: 20250115
  Serious: Yes (Hospitalization, Other)
  Sender: BEIGENE
  Company Number: BE-BEIGENE-BGN-2024-009095

PATIENT

DRUGS (1)
  1. BRUKINSA [Suspect]
     Active Substance: ZANUBRUTINIB
     Indication: Marginal zone lymphoma
     Dosage: 80 MG, 4 DOSAGE FORM, QD (TOTAL 320 MG QD)
     Route: 048
     Dates: start: 20231103, end: 20240626

REACTIONS (12)
  - Streptococcal sepsis [Unknown]
  - Septic shock [Unknown]
  - Multiple organ dysfunction syndrome [Unknown]
  - Respiratory failure [Recovered/Resolved]
  - Streptococcal bacteraemia [Not Recovered/Not Resolved]
  - Escherichia sepsis [Recovered/Resolved]
  - Antiphospholipid syndrome [Unknown]
  - Acute kidney injury [Unknown]
  - Acute respiratory distress syndrome [Unknown]
  - Hepatitis B reactivation [Unknown]
  - Pneumonia respiratory syncytial viral [Unknown]
  - Pneumococcal infection [Unknown]

NARRATIVE: CASE EVENT DATE: 20231201
